FAERS Safety Report 9541485 (Version 1)
Quarter: 2013Q2

REPORT INFORMATION
  Report Type: Spontaneous
  Country: US (occurrence: None)
  Receive Date: 20130524
  Receipt Date: 20130524
  Transmission Date: 20140414
  Serious: Yes (Other)
  Sender: FDA-Public Use
  Company Number: PHEH2013US003146

PATIENT
  Age: 38 Year
  Sex: Female

DRUGS (1)
  1. GILENYA [Suspect]
     Indication: MULTIPLE SCLEROSIS
     Route: 048
     Dates: start: 2010

REACTIONS (6)
  - Fall [None]
  - Multiple sclerosis relapse [None]
  - Visual impairment [None]
  - Gait disturbance [None]
  - Pain in extremity [None]
  - Arthralgia [None]
